FAERS Safety Report 6461783-2 (Version None)
Quarter: 2009Q4

REPORT INFORMATION
  Report Type: 
  Country: None (occurrence: None)
  Receive Date: 20091130
  Receipt Date: 20091118
  Transmission Date: 20100525
  Serious: Yes (Other)
  Sender: FDA-Public Use
  Company Number: PHEH2009US16289

PATIENT
  Sex: Female

DRUGS (1)
  1. VIVELLE-DOT [Suspect]
     Dosage: 0.1 MG, UNK
     Route: 062
     Dates: start: 20070301, end: 20090327

REACTIONS (3)
  - RENAL CELL CARCINOMA [None]
  - RENAL MASS [None]
  - RENAL SURGERY [None]
